FAERS Safety Report 7453906-3 (Version None)
Quarter: 2011Q2

REPORT INFORMATION
  Report Type: 
  Country: None (occurrence: None)
  Receive Date: 20110502
  Receipt Date: 20110302
  Transmission Date: 20111010
  Serious: No
  Sender: FDA-Public Use
  Company Number: US-ASTRAZENECA-2011SE11784

PATIENT
  Age: 35 Year
  Sex: Male

DRUGS (2)
  1. NEXIUM [Suspect]
     Route: 048
  2. SYMBICORT [Concomitant]

REACTIONS (4)
  - NAUSEA [None]
  - WEIGHT DECREASED [None]
  - DRUG DOSE OMISSION [None]
  - APHAGIA [None]
